FAERS Safety Report 17539385 (Version 1)
Quarter: 2020Q1

REPORT INFORMATION
  Report Type: Spontaneous
  Country: US (occurrence: US)
  Receive Date: 20200313
  Receipt Date: 20200313
  Transmission Date: 20200409
  Serious: No
  Sender: FDA-Public Use
  Company Number: None

PATIENT
  Age: 47 Year
  Sex: Male
  Weight: 96.75 kg

DRUGS (1)
  1. TREMFYA [Suspect]
     Active Substance: GUSELKUMAB
     Indication: PSORIASIS
     Dosage: ?          QUANTITY:1 INJECTION(S);OTHER FREQUENCY:1 EVERY 4 WEEKS;OTHER ROUTE:INJECTION IN THIGH?
     Dates: start: 20200306, end: 20200306

REACTIONS (1)
  - Dysuria [None]

NARRATIVE: CASE EVENT DATE: 20200311
